FAERS Safety Report 15842046 (Version 1)
Quarter: 2019Q1

REPORT INFORMATION
  Report Type: Spontaneous
  Country: US (occurrence: US)
  Receive Date: 20190117
  Receipt Date: 20190117
  Transmission Date: 20190417
  Serious: Yes (Other)
  Sender: FDA-Public Use
  Company Number: None

PATIENT
  Age: 55 Year
  Sex: Female
  Weight: 89.55 kg

DRUGS (6)
  1. BARI-MELTS VITAMINS [Concomitant]
  2. PRO-AIR, INHALER [Concomitant]
  3. DULOXETINE. [Suspect]
     Active Substance: DULOXETINE
     Indication: MUSCULOSKELETAL PAIN
     Dosage: ?          QUANTITY:1 CAPSULE(S);?
     Route: 048
  4. LEVOTHYROXINE. [Concomitant]
     Active Substance: LEVOTHYROXINE
  5. DULOXETINE. [Suspect]
     Active Substance: DULOXETINE
     Indication: DEPRESSION
     Dosage: ?          QUANTITY:1 CAPSULE(S);?
     Route: 048
  6. CYMBALTA [Concomitant]
     Active Substance: DULOXETINE HYDROCHLORIDE

REACTIONS (3)
  - Malpositioned teeth [None]
  - Restless legs syndrome [None]
  - Trismus [None]
